FAERS Safety Report 8189841-5 (Version None)
Quarter: 2012Q1

REPORT INFORMATION
  Report Type: 
  Country: None (occurrence: None)
  Receive Date: 20120307
  Receipt Date: 20111025
  Transmission Date: 20120608
  Serious: No
  Sender: FDA-Public Use
  Company Number: US-GLAXOSMITHKLINE-A0950447A

PATIENT
  Age: 58 Year
  Sex: Male
  Weight: 79.1 kg

DRUGS (9)
  1. VIAGRA [Concomitant]
  2. REQUIP [Suspect]
     Indication: PARKINSON'S DISEASE
     Dosage: 8MG THREE TIMES PER DAY
     Route: 048
     Dates: start: 20100101, end: 20111020
  3. VITAMIN D [Concomitant]
  4. FENTANYL-100 [Concomitant]
  5. PRILOSEC [Concomitant]
  6. MIDRIN [Concomitant]
  7. ASPIRIN [Concomitant]
  8. NEURONTIN [Concomitant]
  9. LUNESTA [Concomitant]

REACTIONS (2)
  - VOMITING [None]
  - NAUSEA [None]
